FAERS Safety Report 4842831-X (Version None)
Quarter: 2005Q4

REPORT INFORMATION
  Report Type: 
  Country: None (occurrence: None)
  Receive Date: 20051129
  Receipt Date: 20051121
  Transmission Date: 20060501
  Serious: Yes (Other)
  Sender: FDA-Public Use
  Company Number: DE-2005-024441

PATIENT
  Age: 19 Year
  Sex: Female

DRUGS (1)
  1. PETIBELLE 30 (21) (ETHINYLESTRADIOL, DROSPIRENONE) FILM TABLET [Suspect]
     Indication: ORAL CONTRACEPTION
     Dosage: ORAL
     Route: 048
     Dates: start: 20040101

REACTIONS (2)
  - DRUG INTERACTION [None]
  - SUDDEN HEARING LOSS [None]
